FAERS Safety Report 24732685 (Version 4)
Quarter: 2025Q2

REPORT INFORMATION
  Report Type: Report from Study
  Country: JP (occurrence: JP)
  Receive Date: 20241213
  Receipt Date: 20250417
  Transmission Date: 20250717
  Serious: No
  Sender: ALEXION PHARMACEUTICALS
  Company Number: JP-ASTRAZENECA-220074735_011820_P_1

PATIENT
  Age: 16 Year
  Weight: 39 kg

DRUGS (6)
  1. KOSELUGO [Suspect]
     Active Substance: SELUMETINIB
     Indication: Neurofibromatosis
  2. KOSELUGO [Suspect]
     Active Substance: SELUMETINIB
     Indication: Neurofibromatosis
  3. KOSELUGO [Suspect]
     Active Substance: SELUMETINIB
  4. KOSELUGO [Suspect]
     Active Substance: SELUMETINIB
  5. SILVER SULFADIAZINE [Concomitant]
     Active Substance: SILVER SULFADIAZINE
     Indication: Decubitus ulcer
  6. WHITE PETROLATUM [Concomitant]
     Active Substance: PETROLATUM
     Indication: Decubitus ulcer
     Route: 065

REACTIONS (7)
  - White blood cell count decreased [Recovered/Resolved]
  - Dermatitis [Not Recovered/Not Resolved]
  - Paronychia [Not Recovered/Not Resolved]
  - Ejection fraction decreased [Recovering/Resolving]
  - Blood bilirubin increased [Recovering/Resolving]
  - Nasopharyngitis [Recovered/Resolved]
  - Blood alkaline phosphatase increased [Unknown]
